FAERS Safety Report 13356085 (Version 1)
Quarter: 2017Q1

REPORT INFORMATION
  Report Type: Spontaneous
  Country: IN (occurrence: IN)
  Receive Date: 20170321
  Receipt Date: 20170321
  Transmission Date: 20170429
  Serious: Yes (Life-Threatening)
  Sender: FDA-Public Use
  Company Number: IN-ELI_LILLY_AND_COMPANY-IN201703007759

PATIENT

DRUGS (1)
  1. TRULICITY [Suspect]
     Active Substance: DULAGLUTIDE
     Indication: PRODUCT USED FOR UNKNOWN INDICATION
     Dosage: 1.5 MG, UNKNOWN
     Route: 065
     Dates: start: 201605

REACTIONS (6)
  - Gastric cancer stage IV [Unknown]
  - Asthenia [Unknown]
  - Abdominal pain [Unknown]
  - Lack of satiety [Unknown]
  - Hyperchlorhydria [Unknown]
  - Flatulence [Unknown]
